FAERS Safety Report 12975303 (Version 1)
Quarter: 2016Q4

REPORT INFORMATION
  Report Type: Spontaneous
  Country: US (occurrence: US)
  Receive Date: 20161124
  Receipt Date: 20161124
  Transmission Date: 20170207
  Serious: Yes (Hospitalization, Disabling, Other)
  Sender: FDA-Public Use
  Company Number: None

PATIENT
  Age: 41 Year
  Sex: Female
  Weight: 54.9 kg

DRUGS (6)
  1. LEVAQUIN [Suspect]
     Active Substance: LEVOFLOXACIN
     Indication: SINUSITIS
     Dosage: ?          QUANTITY:6 CAPSULE(S);?
     Route: 048
     Dates: start: 20160512, end: 20160518
  2. CELEXA [Concomitant]
     Active Substance: CITALOPRAM HYDROBROMIDE
  3. GUAFENESIN [Concomitant]
     Active Substance: GUAIFENESIN
  4. LEVAQUIN [Suspect]
     Active Substance: LEVOFLOXACIN
     Indication: MIGRAINE
     Dosage: ?          QUANTITY:6 CAPSULE(S);?
     Route: 048
     Dates: start: 20160512, end: 20160518
  5. AMBIEN [Concomitant]
     Active Substance: ZOLPIDEM TARTRATE
  6. GABAPENTIN. [Concomitant]
     Active Substance: GABAPENTIN

REACTIONS (25)
  - Malaise [None]
  - Hyperacusis [None]
  - Chest pain [None]
  - Joint crepitation [None]
  - Tremor [None]
  - Musculoskeletal stiffness [None]
  - Throat irritation [None]
  - Photophobia [None]
  - Asthenia [None]
  - Lyme disease [None]
  - Oropharyngeal pain [None]
  - Headache [None]
  - Dyspnoea [None]
  - Neck pain [None]
  - Hyperaesthesia [None]
  - Cough [None]
  - Muscle tightness [None]
  - Neuropathy peripheral [None]
  - Chest discomfort [None]
  - Temporomandibular joint syndrome [None]
  - Muscle twitching [None]
  - Myalgia [None]
  - Pain [None]
  - Respiratory disorder [None]
  - Spinal pain [None]

NARRATIVE: CASE EVENT DATE: 20160512
